FAERS Safety Report 6650006-7 (Version None)
Quarter: 2010Q1

REPORT INFORMATION
  Report Type: 
  Country: None (occurrence: None)
  Receive Date: 20100325
  Receipt Date: 20100318
  Transmission Date: 20100710
  Serious: Yes (Other)
  Sender: FDA-Public Use
  Company Number: US-BAYER-201017110NA

PATIENT
  Sex: Female

DRUGS (1)
  1. YASMIN [Suspect]
     Indication: DRUG USE FOR UNKNOWN INDICATION
     Dosage: CONSUMER STATED SHE HAS BEEN ON AND OFF OF YASMIN FOR THE PAST SEVEN YEARS
     Route: 048
     Dates: start: 20030101

REACTIONS (2)
  - ADRENAL DISORDER [None]
  - BLOOD POTASSIUM INCREASED [None]
